FAERS Safety Report 22372516 (Version 1)
Quarter: 2023Q2

REPORT INFORMATION
  Report Type: Spontaneous
  Country: NL (occurrence: NL)
  Receive Date: 20230526
  Receipt Date: 20230526
  Transmission Date: 20230722
  Serious: Yes (Other)
  Sender: FDA-Public Use
  Company Number: NL-LRB-00870687

PATIENT
  Sex: Male

DRUGS (2)
  1. TAMSULOSIN [Suspect]
     Active Substance: TAMSULOSIN
     Indication: Dysuria
     Dosage: 0.4 MILLIGRAM, DAILY, 1 CAPSULE 1 TIME PER DAY
     Route: 065
     Dates: start: 20230117, end: 20230228
  2. MOMETASON NEUSSPRAY 50UG/DO / NASONEX NEUSSPRAY 50MCG/DO 140DO [Concomitant]
     Indication: Product used for unknown indication
     Dosage: NASAL SPRAY, 50 ?G/DOSE (MICROGRAMS PER DOSE)
     Route: 065

REACTIONS (6)
  - Suicidal ideation [Recovered/Resolved]
  - Confusional state [Recovered/Resolved]
  - Dyspnoea [Unknown]
  - Insomnia [Recovering/Resolving]
  - Anxiety [Unknown]
  - Nightmare [Recovering/Resolving]
